FAERS Safety Report 9304919 (Version 3)
Quarter: 2013Q2

REPORT INFORMATION
  Report Type: Spontaneous
  Country: FR (occurrence: FR)
  Receive Date: 20130523
  Receipt Date: 20130620
  Transmission Date: 20140414
  Serious: No
  Sender: FDA-Public Use
  Company Number: FR-JNJFOC-20130506020

PATIENT
  Age: 65 Year
  Sex: Female
  Weight: 110 kg

DRUGS (1)
  1. DUROGESIC [Suspect]
     Indication: SCIATICA
     Route: 062
     Dates: start: 201304

REACTIONS (3)
  - Product quality issue [Not Recovered/Not Resolved]
  - Wrong technique in drug usage process [Unknown]
  - Drug ineffective [Unknown]
